FAERS Safety Report 14901472 (Version 2)
Quarter: 2019Q4

REPORT INFORMATION
  Report Type: Spontaneous
  Country: JP (occurrence: JP)
  Receive Date: 20180516
  Receipt Date: 20191211
  Transmission Date: 20200122
  Serious: Yes (Other)
  Sender: FDA-Public Use
  Company Number: PHJP2018JP004529

PATIENT
  Age: 46 Year
  Sex: Female
  Weight: 72.7 kg

DRUGS (6)
  1. COSENTYX [Suspect]
     Active Substance: SECUKINUMAB
     Indication: PSORIASIS
  2. CELCOX [Concomitant]
     Active Substance: CELECOXIB
     Indication: PAIN
     Dosage: 100 MG, BID
     Route: 048
     Dates: start: 20170911
  3. COSENTYX [Suspect]
     Active Substance: SECUKINUMAB
     Indication: PSORIATIC ARTHROPATHY
     Dosage: 300 MG, QW
     Route: 058
     Dates: start: 20171205, end: 20171226
  4. DOVOBET [Concomitant]
     Active Substance: BETAMETHASONE\CALCIPOTRIENE
     Indication: RASH
     Dosage: 1 G, QD
     Route: 062
  5. UREPEARL [Concomitant]
     Active Substance: UREA
     Indication: RASH
     Dosage: 1 G, QD OR BID
     Route: 062
     Dates: start: 20171116
  6. COSENTYX [Suspect]
     Active Substance: SECUKINUMAB
     Indication: ARTHRALGIA

REACTIONS (8)
  - Concomitant disease aggravated [Recovered/Resolved]
  - Oropharyngeal pain [Recovered/Resolved]
  - Rhinorrhoea [Recovered/Resolved]
  - Lymphadenopathy [Recovered/Resolved]
  - Cough [Recovered/Resolved]
  - Tonsillar hypertrophy [Recovered/Resolved]
  - Chronic tonsillitis [Recovered/Resolved]
  - Coating in mouth [Recovered/Resolved]

NARRATIVE: CASE EVENT DATE: 20171212
